FAERS Safety Report 10544991 (Version 1)
Quarter: 2014Q4

REPORT INFORMATION
  Report Type: Report from Study
  Country: LB (occurrence: LB)
  Receive Date: 20141027
  Receipt Date: 20141027
  Transmission Date: 20150529
  Serious: Yes (Death, Other)
  Sender: FDA-Public Use
  Company Number: LB-SA-2014SA144643

PATIENT

DRUGS (6)
  1. ESTRAMUSTINE [Suspect]
     Active Substance: ESTRAMUSTINE
     Indication: PROSTATE CANCER METASTATIC
     Dosage: ON DAYS 1 TO 21, IN A 28-DAY CYCLE, CYCLE 1
     Route: 048
  2. DOCETAXEL. [Suspect]
     Active Substance: DOCETAXEL
     Indication: PROSTATE CANCER METASTATIC
     Dosage: RECEIVED ON DAY 1, 8 AND 15 IN A 28-DAY CYCLE, CYCLE 2
     Route: 042
  3. ZOLEDRONIC ACID [Suspect]
     Active Substance: ZOLEDRONIC ACID
     Indication: PROSTATE CANCER METASTATIC
     Dosage: 15 MIN INFUSION ON DAY 1, CYCLE 2
     Route: 042
  4. ESTRAMUSTINE [Suspect]
     Active Substance: ESTRAMUSTINE
     Indication: PROSTATE CANCER METASTATIC
     Dosage: ON DAYS 1 TO 21, IN A 28-DAY CYCLE, CYCLE 2
     Route: 048
  5. DOCETAXEL. [Suspect]
     Active Substance: DOCETAXEL
     Indication: PROSTATE CANCER METASTATIC
     Dosage: RECEIVED ON DAY 1, 8 AND 15 IN A 28-DAY CYCLE, CYCLE 1
     Route: 042
  6. ZOLEDRONIC ACID [Suspect]
     Active Substance: ZOLEDRONIC ACID
     Indication: PROSTATE CANCER METASTATIC
     Dosage: 15 MIN INFUSION ON DAY 1, CYCLE 1
     Route: 042

REACTIONS (2)
  - Hepatic failure [Not Recovered/Not Resolved]
  - Stevens-Johnson syndrome [Fatal]
